FAERS Safety Report 19405807 (Version 1)
Quarter: 2021Q2

REPORT INFORMATION
  Report Type: Spontaneous
  Country: DE (occurrence: DE)
  Receive Date: 20210611
  Receipt Date: 20210611
  Transmission Date: 20210717
  Serious: Yes (Hospitalization)
  Sender: FDA-Public Use
  Company Number: DE-TEVA-2021-DE-1920363

PATIENT
  Age: 76 Year
  Sex: Male

DRUGS (17)
  1. METAMIZOL [Concomitant]
     Active Substance: METAMIZOLE SODIUM
     Dosage: 500 MG, IF NECESSARY,
  2. SPIRIVA RESPIMAT 2.5UG [Concomitant]
     Dosage: 2 DOSAGE FORMS DAILY; 2.5 UG, 2?0?0?0
     Route: 055
  3. TRAMADOL. [Concomitant]
     Active Substance: TRAMADOL
     Dosage: 100 MG, 3X
  4. VALORON N RETARD 100/8 MG [Concomitant]
     Dosage: UNIT DOSE :1 DOSAGE FORMS ,8|100 MG, 3X
  5. METOPROLOL. [Concomitant]
     Active Substance: METOPROLOL
     Dosage: 95 MILLIGRAM DAILY;  1?0?1?0
  6. APIXABAN [Concomitant]
     Active Substance: APIXABAN
     Dosage: 10 MILLIGRAM DAILY;   1?0?1?0,
  7. TAMSULOSIN [Concomitant]
     Active Substance: TAMSULOSIN
     Dosage: .4 MILLIGRAM DAILY;  0?0?1?0,
  8. LAXOBERAL 7.5 MG [Concomitant]
     Dosage: IF NECESSARY 10 GTT, DROPS
  9. NITRENDIPINE [Concomitant]
     Active Substance: NITRENDIPINE
     Dosage: 20 MILLIGRAM DAILY;   1?0?0?0,
  10. AMIODARON [Concomitant]
     Active Substance: AMIODARONE
     Dosage: 400 MILLIGRAM DAILY;  1?0?1?0,
  11. PREDNISOLONE. [Suspect]
     Active Substance: PREDNISOLONE
     Dosage: 40 MG, SINCE 25012021 1X,
  12. PANTOPRAZOL [Concomitant]
     Active Substance: PANTOPRAZOLE SODIUM
     Dosage: 40 MILLIGRAM DAILY;  , 0?0?1?0,
  13. RAMIPRIL. [Concomitant]
     Active Substance: RAMIPRIL
     Dosage: 2.5 MILLIGRAM DAILY;   1?0?0?0,
  14. LEVOTHYROXINE SODIUM. [Concomitant]
     Active Substance: LEVOTHYROXINE SODIUM
     Dosage: 175 MICROGRAM DAILY;  1?0?0?0,
  15. MAGNESIUM [Concomitant]
     Active Substance: MAGNESIUM
     Dosage: 1 DOSAGE FORMS DAILY; 1?0?0?0,
  16. COLECALCIFEROL [Concomitant]
     Active Substance: CHOLECALCIFEROL
     Dosage: 20,000 IU / WEEK, 1X,
  17. SIMVASTATIN. [Concomitant]
     Active Substance: SIMVASTATIN
     Dosage: 20 MILLIGRAM DAILY;  0?0?1?0,

REACTIONS (2)
  - Back pain [Unknown]
  - Immobile [Unknown]

NARRATIVE: CASE EVENT DATE: 20210122
